FAERS Safety Report 7161868-1 (Version None)
Quarter: 2010Q4

REPORT INFORMATION
  Report Type: 
  Country: None (occurrence: None)
  Receive Date: 20101215
  Receipt Date: 20101207
  Transmission Date: 20110411
  Serious: Yes (Disabling)
  Sender: FDA-Public Use
  Company Number: PT-SANOFI-AVENTIS-2010SA074342

PATIENT
  Age: 31 Year
  Sex: Female

DRUGS (3)
  1. LASIX [Suspect]
     Route: 048
     Dates: start: 20101103, end: 20101104
  2. BIOFLAVONOIDS [Concomitant]
     Route: 048
     Dates: start: 20101103
  3. ETHINYLESTRADIOL/GESTODENE [Concomitant]
     Route: 048
     Dates: start: 20030101

REACTIONS (2)
  - MALAISE [None]
  - SENSATION OF HEAVINESS [None]
